FAERS Safety Report 4529546-2 (Version None)
Quarter: 2004Q4

REPORT INFORMATION
  Report Type: 
  Country: None (occurrence: None)
  Receive Date: 20041216
  Receipt Date: 20041209
  Transmission Date: 20050328
  Serious: Yes (Disabling, Other)
  Sender: FDA-Public Use
  Company Number: GB-MERCK-0412GBR00092

PATIENT
  Age: 67 Year
  Sex: Female

DRUGS (7)
  1. ZOCOR [Suspect]
     Indication: BLOOD CHOLESTEROL INCREASED
     Route: 048
     Dates: start: 20041103, end: 20041103
  2. ALBUTEROL [Concomitant]
     Route: 055
     Dates: start: 19960101
  3. BECLOMETHASONE DIPROPIONATE [Concomitant]
     Route: 055
  4. NIFEDIPINE [Concomitant]
     Route: 048
  5. LISINOPRIL [Concomitant]
     Route: 048
  6. FISH OIL (UNSPECIFIED) [Concomitant]
     Route: 065
  7. VITAMINS (UNSPECIFIED) [Concomitant]
     Route: 065

REACTIONS (2)
  - MYALGIA [None]
  - MYOSITIS [None]
